FAERS Safety Report 21068465 (Version 1)
Quarter: 2022Q3

REPORT INFORMATION
  Report Type: Spontaneous
  Country: US (occurrence: None)
  Receive Date: 20220711
  Receipt Date: 20220711
  Transmission Date: 20221027
  Serious: Yes (Other)
  Sender: FDA-Public Use
  Company Number: None

PATIENT
  Age: 72 Year
  Sex: Male
  Weight: 64 kg

DRUGS (4)
  1. BEBTELOVIMAB [Suspect]
     Active Substance: BEBTELOVIMAB
     Indication: COVID-19
     Dosage: FREQUENCY : ONCE;?
     Route: 042
     Dates: start: 20220708, end: 20220708
  2. LEVOTHYROXINE [Concomitant]
     Active Substance: LEVOTHYROXINE
     Dates: start: 20220602
  3. ATORVASTATIN [Concomitant]
     Active Substance: ATORVASTATIN
     Dates: start: 20220322
  4. ASPIRIN [Concomitant]
     Active Substance: ASPIRIN
     Dates: start: 20181107

REACTIONS (4)
  - Dizziness [None]
  - Syncope [None]
  - Hyperhidrosis [None]
  - Hypotension [None]

NARRATIVE: CASE EVENT DATE: 20220708
